FAERS Safety Report 6190680-5 (Version None)
Quarter: 2009Q2

REPORT INFORMATION
  Report Type: 
  Country: None (occurrence: None)
  Receive Date: 20090514
  Receipt Date: 20090506
  Transmission Date: 20091009
  Serious: Yes (Other)
  Sender: FDA-Public Use
  Company Number: US-WYE-H09239509

PATIENT
  Sex: Female
  Weight: 74.91 kg

DRUGS (5)
  1. EFFEXOR XR [Suspect]
     Indication: MAJOR DEPRESSION
     Route: 048
     Dates: start: 20030101, end: 20061201
  2. EFFEXOR XR [Suspect]
     Route: 048
     Dates: start: 20061201, end: 20070514
  3. EFFEXOR XR [Suspect]
     Route: 048
     Dates: start: 20070515, end: 20070910
  4. EFFEXOR XR [Suspect]
     Route: 048
     Dates: start: 20070911, end: 20070901
  5. EFFEXOR XR [Suspect]
     Route: 048
     Dates: start: 20070901, end: 20070901

REACTIONS (6)
  - CONVULSION [None]
  - DRUG WITHDRAWAL SYNDROME [None]
  - GRAND MAL CONVULSION [None]
  - INCOHERENT [None]
  - MOUTH INJURY [None]
  - TONGUE INJURY [None]
